FAERS Safety Report 9001659 (Version 1)
Quarter: 2013Q1

REPORT INFORMATION
  Report Type: Spontaneous
  Country: US (occurrence: US)
  Receive Date: 20130107
  Receipt Date: 20130107
  Transmission Date: 20140127
  Serious: Yes (Hospitalization, Disabling, Other)
  Sender: FDA-Public Use
  Company Number: US-009507513-1301USA001260

PATIENT
  Age: 9 Year
  Sex: Female

DRUGS (5)
  1. SINGULAIR [Suspect]
     Dosage: 5 MG, HS
     Route: 048
  2. PREVACID [Suspect]
     Dosage: 15 MG, HS
     Route: 048
  3. SEREVENT [Suspect]
     Dosage: 2 PUFF,  2IN 1D, INHALATION
     Route: 055
  4. PULMICORT [Concomitant]
  5. PROVENTIL [Concomitant]

REACTIONS (8)
  - Vomiting [Unknown]
  - Photosensitivity reaction [Unknown]
  - Hemiplegia [Unknown]
  - Coma [Unknown]
  - Cerebrovascular accident [Unknown]
  - Headache [Unknown]
  - Drug interaction [Unknown]
  - Vertigo [Unknown]
